FAERS Safety Report 4423791-2 (Version None)
Quarter: 2004Q3

REPORT INFORMATION
  Report Type: 
  Country: None (occurrence: None)
  Receive Date: 20040714
  Receipt Date: 20040602
  Transmission Date: 20050211
  Serious: Yes (Other)
  Sender: FDA-Public Use
  Company Number: HQWYE341708JUN04

PATIENT
  Age: 60 Year
  Sex: Female
  Weight: 61.29 kg

DRUGS (8)
  1. ALAVERT [Suspect]
     Indication: UPPER RESPIRATORY TRACT INFECTION
     Dosage: 1 TABLET 1X PER 1 DAY, ORAL
     Route: 048
     Dates: start: 20040601, end: 20040601
  2. OXYGEN (OXYGEN) [Concomitant]
  3. REMERON [Concomitant]
  4. METHADONE HCL [Concomitant]
  5. SYNTHROID [Concomitant]
  6. XANAX [Concomitant]
  7. PREMARIN [Concomitant]
  8. FOSAMAX [Concomitant]

REACTIONS (4)
  - CONDITION AGGRAVATED [None]
  - HYPERHIDROSIS [None]
  - NASAL CONGESTION [None]
  - URINARY RETENTION [None]
